FAERS Safety Report 7496050-1 (Version None)
Quarter: 2011Q2

REPORT INFORMATION
  Report Type: 
  Country: None (occurrence: None)
  Receive Date: 20110523
  Receipt Date: 20110517
  Transmission Date: 20111010
  Serious: Yes (Other)
  Sender: FDA-Public Use
  Company Number: US-B.I. PHARMACEUTICALS,INC./RIDGEFIELD-2011-BP-13307BP

PATIENT
  Sex: Male

DRUGS (11)
  1. TERAZOSIN HCL [Concomitant]
  2. VENTOLIN HFA [Concomitant]
  3. SPIRIVA [Concomitant]
  4. PRADAXA [Suspect]
     Indication: ATRIAL FIBRILLATION
     Dosage: 300 MG
     Dates: start: 20110516, end: 20110516
  5. METOPROLOL SUCCINATE [Concomitant]
  6. VICODIN [Concomitant]
  7. PRILOSEC [Concomitant]
  8. LASIX [Concomitant]
  9. FLOVENT [Concomitant]
  10. COZAAR [Concomitant]
  11. VYTORIN [Concomitant]

REACTIONS (1)
  - RENAL HAEMATOMA [None]
